FAERS Safety Report 12619013 (Version 1)
Quarter: 2016Q3

REPORT INFORMATION
  Report Type: Spontaneous
  Country: US (occurrence: US)
  Receive Date: 20160803
  Receipt Date: 20160803
  Transmission Date: 20161109
  Serious: No
  Sender: FDA-Public Use
  Company Number: US-ASTRAZENECA-2016SE55907

PATIENT
  Sex: Female
  Weight: 54.4 kg

DRUGS (13)
  1. DILTIAZEM. [Concomitant]
     Active Substance: DILTIAZEM
     Indication: HEART RATE INCREASED
     Route: 048
     Dates: start: 201510
  2. ZITHROMYCIN [Concomitant]
     Active Substance: AZITHROMYCIN ANHYDROUS
     Indication: PROPHYLAXIS
     Route: 048
     Dates: start: 2014
  3. MONTELUKAST [Concomitant]
     Active Substance: MONTELUKAST SODIUM
     Route: 048
  4. CENTRUM SILVER [Concomitant]
     Active Substance: MINERALS\VITAMINS
     Indication: PROPHYLAXIS
     Route: 048
     Dates: start: 2011
  5. PREDNISONE. [Concomitant]
     Active Substance: PREDNISONE
     Indication: LUNG DISORDER
     Dosage: 5 AND 10 MG ALTERNATELY, 5MG ONE DAY AND 10 MG THE NEXT DAY
     Route: 048
  6. SPIRIVA [Concomitant]
     Active Substance: TIOTROPIUM BROMIDE MONOHYDRATE
     Indication: RESPIRATORY DISORDER
     Dosage: 1 PUFF DAILY
     Route: 055
     Dates: start: 2014
  7. SYMBICORT [Suspect]
     Active Substance: BUDESONIDE\FORMOTEROL FUMARATE DIHYDRATE
     Indication: CHRONIC OBSTRUCTIVE PULMONARY DISEASE
     Dosage: 2 PUFFS TWICE A DAY
     Route: 055
  8. SYMBICORT [Suspect]
     Active Substance: BUDESONIDE\FORMOTEROL FUMARATE DIHYDRATE
     Indication: LUNG DISORDER
     Dosage: 2 PUFFS TWICE A DAY
     Route: 055
  9. CITRACAL PLUS D3 [Concomitant]
     Indication: BONE DENSITY ABNORMAL
     Route: 048
  10. ASPIRIN. [Concomitant]
     Active Substance: ASPIRIN
     Indication: CARDIOVASCULAR EVENT PROPHYLAXIS
     Route: 048
  11. ALENDRONATE SODIUM. [Concomitant]
     Active Substance: ALENDRONATE SODIUM
     Indication: BONE DENSITY ABNORMAL
     Route: 048
     Dates: start: 201601
  12. VITAMIN D3 [Concomitant]
     Active Substance: CHOLECALCIFEROL
     Indication: BONE DENSITY DECREASED
     Dosage: 1000 UI
     Route: 048
     Dates: start: 201603
  13. CALCIUM [Concomitant]
     Active Substance: CALCIUM
     Dosage: 630.0MG UNKNOWN
     Dates: start: 2014

REACTIONS (6)
  - Drug dose omission [Unknown]
  - Device malfunction [Unknown]
  - Lung disorder [Unknown]
  - Bone disorder [Unknown]
  - Underdose [Unknown]
  - Intentional product misuse [Unknown]
